FAERS Safety Report 16963447 (Version 1)
Quarter: 2019Q4

REPORT INFORMATION
  Report Type: Spontaneous
  Country: BR (occurrence: BR)
  Receive Date: 20191025
  Receipt Date: 20191025
  Transmission Date: 20200122
  Serious: Yes (Other)
  Sender: FDA-Public Use
  Company Number: BR-ALLERGAN-1943021US

PATIENT
  Sex: Female
  Weight: 67.5 kg

DRUGS (2)
  1. CEFTAZIDIME;AVIBACTAM - BP [Suspect]
     Active Substance: AVIBACTAM SODIUM\CEFTAZIDIME
     Indication: KLEBSIELLA INFECTION
     Dosage: 2.5 MG, Q8HR
     Route: 042
     Dates: start: 20190920, end: 20190921
  2. CEFTAZIDIME;AVIBACTAM - BP [Suspect]
     Active Substance: AVIBACTAM SODIUM\CEFTAZIDIME
     Indication: OSTEOMYELITIS

REACTIONS (2)
  - Rash [Unknown]
  - Drug eruption [Unknown]

NARRATIVE: CASE EVENT DATE: 201909
